FAERS Safety Report 17286534 (Version 2)
Quarter: 2020Q1

REPORT INFORMATION
  Report Type: Spontaneous
  Country: US (occurrence: US)
  Receive Date: 20200119
  Receipt Date: 20200204
  Transmission Date: 20200409
  Serious: Yes (Hospitalization, Other)
  Sender: FDA-Public Use
  Company Number: US-UNITED THERAPEUTICS-UNT-2020-000339

PATIENT
  Age: 32 Year
  Sex: Male
  Weight: 77.98 kg

DRUGS (3)
  1. ADEMPAS [Suspect]
     Active Substance: RIOCIGUAT
     Indication: PRODUCT USED FOR UNKNOWN INDICATION
     Dosage: 1 MG, TID
     Route: 065
  2. REMODULIN [Suspect]
     Active Substance: TREPROSTINIL
     Indication: PULMONARY ARTERIAL HYPERTENSION
     Dosage: 0.0786 ?G/KG, CONTINUING
     Route: 058
     Dates: start: 20191125
  3. OPSUMIT [Concomitant]
     Active Substance: MACITENTAN
     Indication: PRODUCT USED FOR UNKNOWN INDICATION
     Dosage: UNK
     Route: 065

REACTIONS (11)
  - Dizziness [Unknown]
  - Dyspepsia [Unknown]
  - Urticaria [Unknown]
  - Chest pain [Unknown]
  - Palpitations [Unknown]
  - Headache [Unknown]
  - Haemorrhage [Unknown]
  - Epistaxis [Unknown]
  - Pain [Unknown]
  - Pyrexia [Unknown]
  - Wheezing [Unknown]

NARRATIVE: CASE EVENT DATE: 20200109
